FAERS Safety Report 4471094-2 (Version None)
Quarter: 2004Q4

REPORT INFORMATION
  Report Type: 
  Country: None (occurrence: None)
  Receive Date: 20041011
  Receipt Date: 20041001
  Transmission Date: 20050328
  Serious: Yes (Hospitalization)
  Sender: FDA-Public Use
  Company Number: FR-BRISTOL-MYERS SQUIBB COMPANY-12719001

PATIENT
  Age: 43 Year
  Sex: Female
  Weight: 55 kg

DRUGS (4)
  1. COUMADIN [Suspect]
     Indication: BREAST CANCER
     Route: 048
     Dates: start: 20040410, end: 20040820
  2. XELODA [Suspect]
  3. XELODA [Suspect]
     Indication: BREAST CANCER
     Dosage: DISCONTINUED ON 20-AUG-2004 VERSUS 28-AUG-2004
     Route: 048
     Dates: start: 20040525, end: 20040801
  4. HERCEPTIN [Concomitant]
     Route: 042
     Dates: start: 20040304, end: 20040408

REACTIONS (4)
  - ANAEMIA [None]
  - ASCITES [None]
  - COAGULOPATHY [None]
  - EPISTAXIS [None]
